FAERS Safety Report 5280774-0 (Version None)
Quarter: 2007Q1

REPORT INFORMATION
  Report Type: 
  Country: None (occurrence: None)
  Receive Date: 20070329
  Receipt Date: 20060117
  Transmission Date: 20070707
  Serious: Yes (Death)
  Sender: FDA-Public Use
  Company Number: US-BAXTER-2006BH000894

PATIENT
  Age: 71 Year
  Sex: Female

DRUGS (2)
  1. HYDROMORPHONE HCL [Suspect]
     Route: 065
     Dates: start: 20060110
  2. BUPIVACAINE [Suspect]
     Route: 065
     Dates: start: 20060110

REACTIONS (2)
  - ACCIDENTAL OVERDOSE [None]
  - CARDIAC ARREST [None]
